FAERS Safety Report 10071015 (Version 2)
Quarter: 2014Q2

REPORT INFORMATION
  Report Type: Report from Study
  Country: US (occurrence: US)
  Receive Date: 20140410
  Receipt Date: 20140410
  Transmission Date: 20141212
  Serious: Yes (Hospitalization)
  Sender: FDA-Public Use
  Company Number: PHEH2014US002248

PATIENT
  Age: 50 Year
  Sex: Female

DRUGS (1)
  1. GILENYA [Suspect]
     Indication: MULTIPLE SCLEROSIS
     Dosage: 0.5 MG, QD
     Route: 048
     Dates: start: 20131031

REACTIONS (5)
  - Hypoaesthesia [Unknown]
  - Cerebellar syndrome [Unknown]
  - Hyperreflexia [Unknown]
  - Asthenia [Unknown]
  - White blood cell count decreased [Unknown]
